FAERS Safety Report 6815334-0 (Version None)
Quarter: 2010Q3

REPORT INFORMATION
  Report Type: 
  Country: None (occurrence: None)
  Receive Date: 20100701
  Receipt Date: 20100701
  Transmission Date: 20110219
  Serious: No
  Sender: FDA-Public Use
  Company Number: None

PATIENT
  Age: 62 Year
  Sex: Male

DRUGS (1)
  1. ZOFRAN [Suspect]
     Dosage: 10 MG 6 HOURS PRN IV PIGGYBACK
     Route: 042
     Dates: start: 20100627, end: 20100627

REACTIONS (2)
  - PRURITUS [None]
  - RASH ERYTHEMATOUS [None]
